FAERS Safety Report 4612966-5 (Version None)
Quarter: 2005Q1

REPORT INFORMATION
  Report Type: 
  Country: None (occurrence: None)
  Receive Date: 20050318
  Receipt Date: 20050304
  Transmission Date: 20050727
  Serious: Yes (Death)
  Sender: FDA-Public Use
  Company Number: JP-JNJFOC-20050301047

PATIENT
  Age: 84 Year
  Sex: Male

DRUGS (2)
  1. TAVANIC [Suspect]
     Dosage: TABLETS TAKEN ORALLY
     Dates: start: 20040914, end: 20040928
  2. TAVANIC [Suspect]
     Dosage: ROUTE OF ADMINISTRATION: INTRAVENOUSLY
     Dates: start: 20040914, end: 20040928

REACTIONS (2)
  - DIARRHOEA [None]
  - ELECTROMECHANICAL DISSOCIATION [None]
